FAERS Safety Report 24295785 (Version 2)
Quarter: 2025Q1

REPORT INFORMATION
  Report Type: Report from Study
  Country: BE (occurrence: BE)
  Receive Date: 20240908
  Receipt Date: 20250212
  Transmission Date: 20250409
  Serious: Yes (Other)
  Sender: ABBVIE
  Company Number: BE-JNJFOC-20170610565

PATIENT
  Age: 77 Year
  Sex: Male

DRUGS (2)
  1. IBRUTINIB [Suspect]
     Active Substance: IBRUTINIB
     Indication: Mantle cell lymphoma
     Route: 048
     Dates: start: 20161111, end: 20180726
  2. IBRUTINIB [Suspect]
     Active Substance: IBRUTINIB
     Indication: Mantle cell lymphoma
     Route: 048
     Dates: start: 20161111, end: 20180726

REACTIONS (7)
  - Aortic valve stenosis [Not Recovered/Not Resolved]
  - Urinary retention [Recovered/Resolved]
  - Transurethral prostatectomy [Recovered/Resolved]
  - Benign prostatic hyperplasia [Recovered/Resolved]
  - Nasopharyngitis [Recovered/Resolved]
  - Oral herpes [Recovered/Resolved]
  - Arthralgia [Recovered/Resolved]

NARRATIVE: CASE EVENT DATE: 20170106
